FAERS Safety Report 11459575 (Version 1)
Quarter: 2015Q3

REPORT INFORMATION
  Report Type: Spontaneous
  Country: US (occurrence: US)
  Receive Date: 20150904
  Receipt Date: 20150904
  Transmission Date: 20151125
  Serious: No
  Sender: FDA-Public Use
  Company Number: US-TARO-2015TAR00654

PATIENT
  Age: 71 Year
  Sex: Male
  Weight: 78.5 kg

DRUGS (9)
  1. ALLOPURINOL. [Concomitant]
     Active Substance: ALLOPURINOL
     Dosage: 100 MG, 1X/DAY
  2. METOPROLOL [Concomitant]
     Active Substance: METOPROLOL
     Dosage: 25 MG, 1X/DAY
     Dates: start: 20150527
  3. TORSEMIDE. [Concomitant]
     Active Substance: TORSEMIDE
     Dosage: 20 MG, 1X/DAY
  4. COLCHICINE. [Concomitant]
     Active Substance: COLCHICINE
     Dosage: 0.3 MG, EVERY 48 HOURS
  5. CALCITRIOL. [Concomitant]
     Active Substance: CALCITRIOL
     Dosage: 0.5 ?G, 3X/WEEK
     Dates: start: 2010
  6. AMLODIPINE [Concomitant]
     Active Substance: AMLODIPINE BESYLATE
     Dosage: 5 MG, 1X/DAY
     Dates: start: 201503
  7. HYDRALAZINE HYDROCHLORIDE. [Concomitant]
     Active Substance: HYDRALAZINE HYDROCHLORIDE
     Dosage: 100 MG, 3X/DAY
     Dates: start: 2009
  8. WARFARIN SODIUM TABLETS USP 5MG [Suspect]
     Active Substance: WARFARIN SODIUM
     Indication: ATRIAL FIBRILLATION
     Dosage: 5 MG MONDAYS AND WEDNESDAYS, 2.5MG ALL OTHER DAYS OF THE WEEK
     Route: 048
     Dates: start: 20150427
  9. WARFARIN SODIUM TABLETS USP 5MG [Suspect]
     Active Substance: WARFARIN SODIUM
     Dosage: 2.5 MG, 5X/WEEK
     Route: 048
     Dates: start: 20150427

REACTIONS (2)
  - Spondylitis [Not Recovered/Not Resolved]
  - Parvovirus infection [Not Recovered/Not Resolved]

NARRATIVE: CASE EVENT DATE: 201505
